FAERS Safety Report 7866565-2 (Version None)
Quarter: 2011Q4

REPORT INFORMATION
  Report Type: 
  Country: None (occurrence: None)
  Receive Date: 20111028
  Receipt Date: 20110707
  Transmission Date: 20120403
  Serious: No
  Sender: FDA-Public Use
  Company Number: US-GLAXOSMITHKLINE-A0935339A

PATIENT
  Age: 64 Year
  Sex: Female

DRUGS (14)
  1. THEOPHYLLINE [Concomitant]
  2. LEXAPRO [Concomitant]
  3. VICODIN [Concomitant]
  4. VISTARIL [Concomitant]
  5. CLONOPIN [Concomitant]
  6. ACCOLATE [Concomitant]
  7. LASIX [Concomitant]
  8. NEURONTIN [Concomitant]
  9. ADVAIR DISKUS 100/50 [Suspect]
     Indication: ASTHMA
     Route: 055
  10. ULTRAM [Concomitant]
  11. ZOCOR [Concomitant]
  12. TYLENOL-500 [Concomitant]
  13. NEXIUM [Concomitant]
  14. VIT D [Concomitant]

REACTIONS (4)
  - WHEEZING [None]
  - PRODUCT QUALITY ISSUE [None]
  - COUGH [None]
  - PRODUCTIVE COUGH [None]
